FAERS Safety Report 10224083 (Version 1)
Quarter: 2014Q2

REPORT INFORMATION
  Report Type: Spontaneous
  Country: GB (occurrence: GB)
  Receive Date: 20140609
  Receipt Date: 20140609
  Transmission Date: 20141212
  Serious: Yes (Disabling)
  Sender: FDA-Public Use
  Company Number: PHHY2014GB066639

PATIENT
  Sex: Female

DRUGS (5)
  1. SIMVASTATIN [Suspect]
     Dosage: 20 MG, UNK
     Route: 048
  2. ASPIRIN [Concomitant]
  3. FUROSEMIDE [Concomitant]
  4. METOPROLOL TARTRATE [Concomitant]
  5. RAMIPRIL [Concomitant]

REACTIONS (3)
  - Feeling abnormal [Not Recovered/Not Resolved]
  - Myalgia [Not Recovered/Not Resolved]
  - Arthralgia [Not Recovered/Not Resolved]
